FAERS Safety Report 5248104-8 (Version None)
Quarter: 2007Q1

REPORT INFORMATION
  Report Type: 
  Country: None (occurrence: None)
  Receive Date: 20070227
  Receipt Date: 20070226
  Transmission Date: 20070707
  Serious: Yes (Other)
  Sender: FDA-Public Use
  Company Number: JP-JPN-A200605222

PATIENT
  Age: 27 Year
  Sex: Female

DRUGS (17)
  1. SULTANOL INHALER [Suspect]
     Indication: ASTHMA
     Route: 055
     Dates: start: 20040209
  2. BETAMETHASONE [Suspect]
     Indication: ASTHMA
     Route: 042
  3. THEOPHYLLINE [Suspect]
     Dosage: 800MG PER DAY
     Route: 065
  4. LIDOCAINE [Suspect]
     Indication: ASTHMA
     Route: 055
     Dates: start: 20040301
  5. UNSPECIFIED DRUG [Suspect]
     Route: 042
     Dates: start: 20040209
  6. AMINOPHYLLINE [Suspect]
     Route: 042
     Dates: start: 20040209
  7. RINDERON [Suspect]
     Indication: ASTHMA
     Dosage: 10MG PER DAY
     Dates: start: 20040302
  8. DECADRON [Suspect]
     Indication: ASTHMA
     Dosage: 10MG PER DAY
     Route: 048
     Dates: start: 20040209, end: 20040302
  9. UNIPHYL [Suspect]
     Indication: ASTHMA
     Route: 048
     Dates: start: 20040226, end: 20040325
  10. BUDESONIDE [Concomitant]
     Dosage: 1600MCG PER DAY
     Route: 055
  11. SALMETEROL XINAFOATE [Concomitant]
     Indication: ASTHMA
     Dosage: 100MCG PER DAY
     Route: 055
  12. BETAMETHASONE [Concomitant]
     Dosage: 1.5MG PER DAY
     Route: 048
  13. MONTELUKAST SODIUM [Concomitant]
     Dosage: 10MG PER DAY
     Route: 048
  14. XYLOCAINE [Concomitant]
     Route: 055
  15. ACINON [Concomitant]
     Indication: GASTRIC ULCER
     Route: 048
  16. SINGULAIR [Concomitant]
     Indication: ASTHMA
     Route: 048
  17. ALESION [Concomitant]
     Indication: ASTHMA
     Route: 048

REACTIONS (2)
  - DRUG EXPOSURE DURING PREGNANCY [None]
  - PREMATURE BABY [None]
